FAERS Safety Report 24790892 (Version 2)
Quarter: 2025Q3

REPORT INFORMATION
  Report Type: Report from Study
  Country: EU (occurrence: EU)
  Receive Date: 20241230
  Receipt Date: 20250917
  Transmission Date: 20251020
  Serious: Yes (Other)
  Sender: VERITY PHARMACEUTICALS INC.
  Company Number: EU-VER-202200150

PATIENT
  Sex: Male

DRUGS (1)
  1. TRIPTORELIN PAMOATE [Suspect]
     Active Substance: TRIPTORELIN PAMOATE
     Indication: Prostate cancer
     Dosage: 1.00 X PER 3 MAANDEN (11.25 MG, 3 M), (STRENGTH: 11.25MG SOLV 2ML (1ST)
     Route: 030

REACTIONS (1)
  - Therapeutic product effect decreased [Not Recovered/Not Resolved]
